FAERS Safety Report 16598274 (Version 2)
Quarter: 2019Q3

REPORT INFORMATION
  Report Type: Report from Study
  Country: DE (occurrence: DE)
  Receive Date: 20190719
  Receipt Date: 20190723
  Transmission Date: 20191004
  Serious: Yes (Hospitalization)
  Sender: FDA-Public Use
  Company Number: DE-ASTRAZENECA-2019SF02161

PATIENT
  Age: 48 Year
  Sex: Female

DRUGS (16)
  1. TOCILIZUMAB. [Suspect]
     Active Substance: TOCILIZUMAB
     Indication: RHEUMATOID ARTHRITIS
     Route: 058
     Dates: start: 20161201, end: 201804
  2. RAMIPRIL. [Concomitant]
     Active Substance: RAMIPRIL
  3. TIZANIDINE. [Concomitant]
     Active Substance: TIZANIDINE
  4. NOVAMINSULFON [Concomitant]
     Active Substance: METAMIZOLE
  5. FLUTICASONE FUROATE;VILANTEROL TRIFENATATE [Concomitant]
     Active Substance: FLUTICASONE FUROATE\VILANTEROL TRIFENATATE
  6. EBASTINE [Concomitant]
     Active Substance: EBASTINE
     Dosage: 10.0MG AS REQUIRED
  7. RAMIPRIL. [Concomitant]
     Active Substance: RAMIPRIL
  8. TOCILIZUMAB. [Suspect]
     Active Substance: TOCILIZUMAB
     Indication: RHEUMATOID ARTHRITIS
     Dosage: ONCE/SINGLE ADMINISTRATION
     Route: 042
     Dates: start: 201809, end: 201809
  9. PALEXIA [Concomitant]
     Active Substance: TAPENTADOL HYDROCHLORIDE
     Dosage: MORNING AND EVENING
  10. PALEXIA [Concomitant]
     Active Substance: TAPENTADOL HYDROCHLORIDE
  11. L-THYROXIN [Concomitant]
     Active Substance: LEVOTHYROXINE SODIUM
     Dosage: 75UG/INHAL
  12. DEKRISTOL [Concomitant]
     Active Substance: CHOLECALCIFEROL
  13. INUVAIR [Concomitant]
     Active Substance: BECLOMETHASONE DIPROPIONATE\FORMOTEROL FUMARATE
  14. ESOMEPRAZOLE. [Suspect]
     Active Substance: ESOMEPRAZOLE MAGNESIUM
     Indication: PRODUCT USED FOR UNKNOWN INDICATION
     Dosage: 40.0MG UNKNOWN
     Route: 065
  15. SORMODREN [Concomitant]
     Active Substance: BORNAPRINE HYDROCHLORIDE
  16. TIZANIDINE. [Concomitant]
     Active Substance: TIZANIDINE

REACTIONS (12)
  - Peripheral swelling [Recovered/Resolved]
  - Drug intolerance [Recovered/Resolved]
  - Infection susceptibility increased [Recovered/Resolved]
  - Joint swelling [Recovered/Resolved]
  - Arthralgia [Recovered/Resolved]
  - Fall [Unknown]
  - Foot fracture [Recovering/Resolving]
  - Muscle spasms [Recovered/Resolved]
  - Muscle strain [Recovering/Resolving]
  - Gastrointestinal viral infection [Recovered/Resolved]
  - Ankle fracture [Recovered/Resolved]
  - Impaired healing [Recovered/Resolved]

NARRATIVE: CASE EVENT DATE: 20170601
